FAERS Safety Report 8025490-7 (Version None)
Quarter: 2012Q1

REPORT INFORMATION
  Report Type: 
  Country: None (occurrence: None)
  Receive Date: 20120105
  Receipt Date: 20111226
  Transmission Date: 20120608
  Serious: Yes (Other)
  Sender: FDA-Public Use
  Company Number: PHHY2011JP109310

PATIENT
  Sex: Male

DRUGS (7)
  1. CRESTOR [Suspect]
  2. ASPIRIN [Suspect]
  3. ROHYPNOL [Suspect]
  4. CARVEDILOL [Suspect]
  5. DIOVAN [Suspect]
     Indication: HYPERTENSION
     Dosage: UNK
     Route: 048
     Dates: start: 20111001
  6. OMEPRAZOLE [Suspect]
  7. PURSENNID [Suspect]

REACTIONS (1)
  - PEMPHIGUS [None]
